FAERS Safety Report 7728041-7 (Version None)
Quarter: 2011Q3

REPORT INFORMATION
  Report Type: 
  Country: None (occurrence: None)
  Receive Date: 20110905
  Receipt Date: 20110826
  Transmission Date: 20111222
  Serious: No
  Sender: FDA-Public Use
  Company Number: US-BIOGENIDEC-2011BI033205

PATIENT
  Sex: Female

DRUGS (3)
  1. AVONEX [Concomitant]
     Route: 030
  2. TYSABRI [Suspect]
     Indication: MULTIPLE SCLEROSIS
     Route: 042
     Dates: start: 20080326
  3. AVONEX [Concomitant]
     Indication: MULTIPLE SCLEROSIS
     Route: 030

REACTIONS (3)
  - MOBILITY DECREASED [None]
  - CONFUSIONAL STATE [None]
  - COGNITIVE DISORDER [None]
